FAERS Safety Report 9442910 (Version 1)
Quarter: 2013Q3

REPORT INFORMATION
  Report Type: Spontaneous
  Country: US (occurrence: None)
  Receive Date: 20130805
  Receipt Date: 20130805
  Transmission Date: 20140515
  Serious: No
  Sender: FDA-Public Use
  Company Number: None

PATIENT
  Age: 55 Year
  Sex: Female
  Weight: 58.97 kg

DRUGS (1)
  1. ESTRING [Suspect]
     Dosage: ONE EVERY 3 MONTHS VAG
     Route: 067
     Dates: start: 20130104, end: 20130404

REACTIONS (3)
  - Pelvic discomfort [None]
  - Nervous system disorder [None]
  - Sensation of pressure [None]
